FAERS Safety Report 4358362-X (Version None)
Quarter: 2004Q2

REPORT INFORMATION
  Report Type: 
  Country: None (occurrence: None)
  Receive Date: 20040511
  Receipt Date: 20040426
  Transmission Date: 20050107
  Serious: Yes (Hospitalization)
  Sender: FDA-Public Use
  Company Number: 191051

PATIENT
  Age: 51 Year
  Sex: Female
  Weight: 97.4326 kg

DRUGS (2)
  1. AVONEX [Suspect]
     Indication: MULTIPLE SCLEROSIS
     Dosage: 30 MCG QW IM
     Route: 030
     Dates: start: 20030110
  2. ULTRAM [Concomitant]

REACTIONS (3)
  - APPLICATION SITE IRRITATION [None]
  - ATROPHIC VULVOVAGINITIS [None]
  - HYPERSENSITIVITY [None]
